FAERS Safety Report 19918659 (Version 9)
Quarter: 2022Q2

REPORT INFORMATION
  Report Type: Report from Study
  Country: IT (occurrence: IT)
  Receive Date: 20211005
  Receipt Date: 20220401
  Transmission Date: 20220721
  Serious: Yes (Other)
  Sender: FDA-Public Use
  Company Number: IT-MYLANLABS-2021M1068082

PATIENT
  Age: 78 Year
  Sex: Female
  Weight: 74 kg

DRUGS (33)
  1. FONDAPARINUX [Suspect]
     Active Substance: FONDAPARINUX
     Indication: Product used for unknown indication
     Dosage: UNK
     Route: 065
     Dates: start: 20210820, end: 20210913
  2. BENDAMUSTINE HYDROCHLORIDE [Suspect]
     Active Substance: BENDAMUSTINE HYDROCHLORIDE
     Indication: Product used for unknown indication
     Dosage: 121 MG, (ADMINISTERED DAYS 1,2 EVERY CYCLE)
     Route: 042
     Dates: start: 20210525, end: 20210810
  3. BENDAMUSTINE HYDROCHLORIDE [Suspect]
     Active Substance: BENDAMUSTINE HYDROCHLORIDE
     Dosage: 121 MILLIGRAM, CYCLE 1,2 EVERY CYCLE
     Route: 042
     Dates: start: 20210810
  4. BENDAMUSTINE HYDROCHLORIDE [Suspect]
     Active Substance: BENDAMUSTINE HYDROCHLORIDE
     Dosage: 121 MILLIGRAM, 121 MG, (ADMINISTERED DAYS 1,2 EVERY CYCLE)
     Route: 042
     Dates: start: 20210525, end: 20211021
  5. BENDAMUSTINE HYDROCHLORIDE [Suspect]
     Active Substance: BENDAMUSTINE HYDROCHLORIDE
     Dosage: 121 MG, (ADMINISTERED DAYS 1,2 EVERY CYCLE)
     Route: 042
     Dates: start: 20211119
  6. BENDAMUSTINE HYDROCHLORIDE [Suspect]
     Active Substance: BENDAMUSTINE HYDROCHLORIDE
     Dosage: 121 MG, (ADMINISTERED DAYS 1,2 EVERY CYCLE)
     Route: 042
     Dates: end: 20211119
  7. BENDAMUSTINE HYDROCHLORIDE [Suspect]
     Active Substance: BENDAMUSTINE HYDROCHLORIDE
     Dosage: 121 MG, (ADMINISTERED DAYS 1,2 EVERY CYCLE)
     Route: 042
     Dates: end: 20211021
  8. COPANLISIB [Suspect]
     Active Substance: COPANLISIB
     Indication: Product used for unknown indication
     Dosage: 30 MILLIGRAM
     Route: 042
  9. COPANLISIB [Suspect]
     Active Substance: COPANLISIB
     Dosage: 45 MG, (ADMINISTERED ON DAYS 1, 8 AND 15 OF EVERY CYCLE)
     Route: 042
     Dates: start: 20210524, end: 20210823
  10. COPANLISIB [Suspect]
     Active Substance: COPANLISIB
     Dosage: 45 MILLIGRAM, CYCLE, 1, 8, 15 OF EVERY CYCLE
     Route: 042
     Dates: start: 20210823
  11. COPANLISIB [Suspect]
     Active Substance: COPANLISIB
     Dosage: 30 MILLIGRAM, 30 MG (ADMINISTERED ON DAY 1,8,15 EVERY CYCLE)
     Route: 042
     Dates: start: 20210524, end: 20211027
  12. COPANLISIB [Suspect]
     Active Substance: COPANLISIB
     Dosage: 30 MG (ADMINISTERED ON DAY 1,8,15 EVERY CYCLE)
     Route: 042
     Dates: end: 20211027
  13. COPANLISIB [Suspect]
     Active Substance: COPANLISIB
     Dosage: 30 MG (ADMINISTERED ON DAYS 1, 8 AND 15 OF EVERY CYCLE))
     Route: 042
     Dates: end: 20211202
  14. COPANLISIB [Suspect]
     Active Substance: COPANLISIB
     Dosage: 30 MG (ADMINISTERED ON DAYS 1, 8 AND 15 OF EVERY CYCLE)
     Route: 042
     Dates: start: 20211202
  15. RITUXIMAB [Suspect]
     Active Substance: RITUXIMAB
     Indication: Product used for unknown indication
     Dosage: 649 MG (ON DAY 1 EVERY CYCLE)
     Route: 042
     Dates: start: 20210525, end: 20210809
  16. RITUXIMAB [Suspect]
     Active Substance: RITUXIMAB
     Dosage: 649 MILLIGRAM, CYCLE DAY 1EVERY CYCLE
     Route: 042
     Dates: start: 20210809
  17. RITUXIMAB [Suspect]
     Active Substance: RITUXIMAB
     Dosage: 649 MILLIGRAM,  649 MG (ON DAY 1 EVERY CYCLE)
     Route: 042
     Dates: start: 20210525, end: 20211020
  18. RITUXIMAB [Suspect]
     Active Substance: RITUXIMAB
     Dosage: 649 MG (ON DAY 1 EVERY CYCLE)
     Route: 042
     Dates: end: 20211118
  19. RITUXIMAB [Suspect]
     Active Substance: RITUXIMAB
     Dosage: 649 MG (ON DAY 1 EVERY CYCLE)
     Route: 042
     Dates: end: 20211020
  20. RITUXIMAB [Suspect]
     Active Substance: RITUXIMAB
     Dosage: 649 MG (ON DAY 1 EVERY CYCLE)
     Route: 042
     Dates: start: 20211118
  21. BACTRIM [Suspect]
     Active Substance: SULFAMETHOXAZOLE\TRIMETHOPRIM
     Indication: Product used for unknown indication
     Dosage: UNK
     Route: 065
     Dates: start: 20210524, end: 20210906
  22. FLUCONAZOLE [Suspect]
     Active Substance: FLUCONAZOLE
     Indication: Product used for unknown indication
     Dosage: UNK
     Route: 065
     Dates: start: 20210524, end: 20210906
  23. FUROSEMIDE [Concomitant]
     Active Substance: FUROSEMIDE
     Indication: Product used for unknown indication
     Dosage: UNK
     Route: 065
     Dates: start: 20210126
  24. LANSOPRAZOLE [Concomitant]
     Active Substance: LANSOPRAZOLE
     Indication: Product used for unknown indication
     Dosage: UNK
     Route: 065
     Dates: start: 20210524
  25. PERINDOPRIL [Concomitant]
     Active Substance: PERINDOPRIL
     Indication: Product used for unknown indication
     Dosage: UNK
     Route: 065
     Dates: start: 20210126
  26. PERINDOPRIL [Concomitant]
     Active Substance: PERINDOPRIL
     Dosage: UNK
     Route: 065
     Dates: start: 20210531
  27. CHOLECALCIFEROL [Concomitant]
     Active Substance: CHOLECALCIFEROL
     Indication: Product used for unknown indication
     Dosage: UNK
  28. CHOLECALCIFEROL [Concomitant]
     Active Substance: CHOLECALCIFEROL
     Dosage: UNK
     Route: 065
  29. ACYCLOVIR [Concomitant]
     Active Substance: ACYCLOVIR
     Indication: Product used for unknown indication
     Dosage: UNK, START 18-NOV-2021
     Dates: end: 20211213
  30. ACYCLOVIR [Concomitant]
     Active Substance: ACYCLOVIR
     Dosage: UNK
     Route: 065
     Dates: start: 20211118, end: 20211213
  31. VALGANCICLOVIR [Concomitant]
     Active Substance: VALGANCICLOVIR
     Indication: Product used for unknown indication
     Dosage: UNK
     Dates: start: 20210802, end: 20210913
  32. ERYTHROPOIETIN [Concomitant]
     Active Substance: ERYTHROPOIETIN
     Indication: Product used for unknown indication
     Dosage: UNK
     Route: 065
     Dates: start: 20210726
  33. MEDROL [Concomitant]
     Active Substance: METHYLPREDNISOLONE
     Indication: Product used for unknown indication
     Dosage: UNK, QD
     Route: 065
     Dates: end: 20210809

REACTIONS (6)
  - Cytomegalovirus infection reactivation [Recovered/Resolved]
  - Rash maculo-papular [Recovered/Resolved]
  - COVID-19 [Unknown]
  - Decreased appetite [Unknown]
  - Erythema [Recovered/Resolved]
  - Pruritus [Recovered/Resolved]

NARRATIVE: CASE EVENT DATE: 20210829
